FAERS Safety Report 6902360-6 (Version None)
Quarter: 2010Q3

REPORT INFORMATION
  Report Type: 
  Country: None (occurrence: None)
  Receive Date: 20100803
  Receipt Date: 20080520
  Transmission Date: 20110219
  Serious: No
  Sender: FDA-Public Use
  Company Number: US-PFIZER INC-2008043811

PATIENT
  Sex: Female
  Weight: 86.2 kg

DRUGS (5)
  1. LYRICA [Suspect]
     Indication: PAIN
     Dates: start: 20080501
  2. FENTANYL CITRATE [Interacting]
     Route: 062
  3. TOPROL-XL [Concomitant]
  4. AMBIEN [Concomitant]
  5. IBUPROFEN [Concomitant]

REACTIONS (5)
  - BLOOD PRESSURE DECREASED [None]
  - DRUG INTERACTION [None]
  - HEART RATE DECREASED [None]
  - INTRAOCULAR PRESSURE INCREASED [None]
  - MIOSIS [None]
